FAERS Safety Report 15405159 (Version 2)
Quarter: 2018Q4

REPORT INFORMATION
  Report Type: Report from Study
  Country: None (occurrence: US)
  Receive Date: 20180920
  Receipt Date: 20181025
  Transmission Date: 20190204
  Serious: Yes (Death, Hospitalization, Other)
  Sender: FDA-Public Use
  Company Number: US-ABBVIE-18K-163-2486101-00

PATIENT
  Age: 65 Year
  Sex: Female
  Weight: 81.72 kg

DRUGS (4)
  1. DECITABINE. [Concomitant]
     Active Substance: DECITABINE
     Indication: ACUTE MYELOID LEUKAEMIA
     Dates: start: 20180706
  2. DECITABINE. [Concomitant]
     Active Substance: DECITABINE
     Dates: start: 20180808
  3. VENCLEXTA [Suspect]
     Active Substance: VENETOCLAX
     Indication: ACUTE MYELOID LEUKAEMIA
     Route: 048
     Dates: start: 20180808, end: 20180919
  4. VENCLEXTA [Suspect]
     Active Substance: VENETOCLAX
     Indication: REMISSION NOT ACHIEVED
     Route: 048
     Dates: start: 20180714, end: 20180802

REACTIONS (15)
  - Respiratory failure [Fatal]
  - Renal failure [Fatal]
  - Fall [Recovered/Resolved]
  - Small intestinal obstruction [Fatal]
  - Intentional product use issue [Unknown]
  - Pyrexia [Not Recovered/Not Resolved]
  - Myelodysplastic syndrome [Fatal]
  - Syncope [Unknown]
  - Head injury [Recovered/Resolved]
  - Neutrophil count decreased [Recovering/Resolving]
  - Fatigue [Not Recovered/Not Resolved]
  - Subarachnoid haemorrhage [Fatal]
  - Haemorrhage [Not Recovered/Not Resolved]
  - Blood disorder [Not Recovered/Not Resolved]
  - Diarrhoea [Recovering/Resolving]

NARRATIVE: CASE EVENT DATE: 2018
